FAERS Safety Report 5492629-7 (Version None)
Quarter: 2007Q4

REPORT INFORMATION
  Report Type: 
  Country: None (occurrence: None)
  Receive Date: 20071022
  Receipt Date: 20071011
  Transmission Date: 20080405
  Serious: Yes (Hospitalization, Other)
  Sender: FDA-Public Use
  Company Number: US-PFIZER INC-2007074969

PATIENT
  Sex: Female

DRUGS (1)
  1. GEODON [Suspect]
     Indication: BIPOLAR DISORDER
     Dates: start: 20040801, end: 20070501

REACTIONS (3)
  - BONE DENSITY DECREASED [None]
  - HIP FRACTURE [None]
  - HYPERPROLACTINAEMIA [None]
